FAERS Safety Report 8808286 (Version 3)
Quarter: 2012Q4

REPORT INFORMATION
  Report Type: 
  Country: US (occurrence: US)
  Receive Date: 20120926
  Receipt Date: 20121210
  Transmission Date: 20130627
  Serious: Yes (Other)
  Sender: FDA-Public Use
  Company Number: US-BIOGENIDEC-2012BI040068

PATIENT
  Age: 32 Year
  Sex: Female

DRUGS (4)
  1. TYSABRI [Suspect]
     Indication: MULTIPLE SCLEROSIS
     Route: 042
     Dates: start: 20120523
  2. AVONEX [Concomitant]
     Indication: MULTIPLE SCLEROSIS
     Route: 030
     Dates: start: 20020419
  3. BENADRYL [Concomitant]
     Indication: PREMEDICATION
     Dates: start: 201209
  4. TYLENOL [Concomitant]
     Indication: PREMEDICATION
     Dates: start: 201209

REACTIONS (2)
  - Infusion related reaction [Recovered/Resolved]
  - Hepatic enzyme increased [Recovered/Resolved]
